FAERS Safety Report 21323974 (Version 9)
Quarter: 2025Q1

REPORT INFORMATION
  Report Type: Spontaneous
  Country: US (occurrence: US)
  Receive Date: 20220912
  Receipt Date: 20250116
  Transmission Date: 20250409
  Serious: Yes (Other)
  Sender: PFIZER
  Company Number: US-PFIZER INC-202201142864

PATIENT
  Age: 76 Year
  Sex: Female
  Weight: 72.57 kg

DRUGS (4)
  1. XELJANZ [Suspect]
     Active Substance: TOFACITINIB CITRATE
     Indication: Rheumatoid arthritis
     Dosage: 5 MG, 2X/DAY
     Route: 048
  2. METHOTREXATE SODIUM [Concomitant]
     Active Substance: METHOTREXATE SODIUM
     Indication: Rheumatoid arthritis
     Dosage: 4 DF, WEEKLY
  3. OLMESARTAN [Concomitant]
     Active Substance: OLMESARTAN
     Indication: Hypertension
  4. ATORVASTATIN [Concomitant]
     Active Substance: ATORVASTATIN
     Indication: Blood cholesterol increased

REACTIONS (11)
  - Neuropathy peripheral [Unknown]
  - Seizure [Not Recovered/Not Resolved]
  - Condition aggravated [Unknown]
  - Fall [Unknown]
  - Ligament sprain [Unknown]
  - Pain [Recovering/Resolving]
  - Inflammation [Unknown]
  - Pain in extremity [Unknown]
  - Pelvic pain [Unknown]
  - Osteoporosis [Unknown]
  - Memory impairment [Unknown]

NARRATIVE: CASE EVENT DATE: 20220101
